FAERS Safety Report 5341899-4 (Version None)
Quarter: 2007Q2

REPORT INFORMATION
  Report Type: 
  Country: None (occurrence: None)
  Receive Date: 20070601
  Receipt Date: 20070522
  Transmission Date: 20071010
  Serious: Yes (Hospitalization)
  Sender: FDA-Public Use
  Company Number: US-ELI_LILLY_AND_COMPANY-US200611001356

PATIENT
  Age: 65 Year
  Sex: Male

DRUGS (1)
  1. FORTEO [Suspect]
     Indication: OSTEOPOROSIS
     Dosage: UNK, UNK
     Dates: start: 20060901, end: 20070101

REACTIONS (11)
  - ACCIDENTAL OVERDOSE [None]
  - ASTHMA [None]
  - COUGH [None]
  - DYSPNOEA [None]
  - HEAD DISCOMFORT [None]
  - LUNG INFECTION [None]
  - MEDICATION ERROR [None]
  - MOBILITY DECREASED [None]
  - PSEUDOMONAS INFECTION [None]
  - SPINAL FRACTURE [None]
  - STAPHYLOCOCCAL INFECTION [None]
